FAERS Safety Report 4668591-3 (Version None)
Quarter: 2005Q2

REPORT INFORMATION
  Report Type: 
  Country: None (occurrence: None)
  Receive Date: 20050523
  Receipt Date: 20040824
  Transmission Date: 20051028
  Serious: Yes (Other)
  Sender: FDA-Public Use
  Company Number: PHNU2004DE02979

PATIENT
  Sex: Female
  Weight: 70 kg

DRUGS (5)
  1. ARIMIDEX [Concomitant]
     Dosage: 1 MG, QD
     Route: 048
     Dates: start: 20030205
  2. DEHYDRO SANOL TRI [Concomitant]
     Indication: HYPERTENSION
     Dosage: 1 DF, QD
     Route: 048
  3. DOLO VISANO DRAGEES [Concomitant]
     Indication: BONE PAIN
     Dosage: UNK, PRN
     Route: 048
  4. DICLAC [Concomitant]
     Dosage: UNK, PRN
     Route: 065
  5. ZOMETA [Suspect]
     Indication: METASTASES TO BONE
     Dosage: 4 MG, QMO
     Dates: start: 20030604, end: 20040602

REACTIONS (5)
  - BONE OPERATION [None]
  - MOUTH ULCERATION [None]
  - OSTEONECROSIS [None]
  - OSTEOTOMY [None]
  - PRIMARY SEQUESTRUM [None]
